FAERS Safety Report 10969803 (Version 1)
Quarter: 2015Q1

REPORT INFORMATION
  Report Type: Spontaneous
  Country: DE (occurrence: DE)
  Receive Date: 20150331
  Receipt Date: 20150331
  Transmission Date: 20150721
  Serious: Yes (Hospitalization, Disabling)
  Sender: FDA-Public Use
  Company Number: DE-SA-2015SA037412

PATIENT
  Age: 46 Year
  Sex: Female
  Weight: 76 kg

DRUGS (7)
  1. MADOPAR [Concomitant]
     Active Substance: BENSERAZIDE HYDROCHLORIDE\LEVODOPA
     Indication: RESTLESS LEGS SYNDROME
     Dosage: DOSE: 160+25
  2. DRONEDARONE [Suspect]
     Active Substance: DRONEDARONE
     Indication: ATRIAL FIBRILLATION
     Route: 048
     Dates: start: 20150309, end: 20150316
  3. BISOPROLOL [Concomitant]
     Active Substance: BISOPROLOL
     Route: 048
  4. IBUPROFEN. [Concomitant]
     Active Substance: IBUPROFEN
     Indication: ANALGESIC THERAPY
     Route: 048
     Dates: start: 20150210, end: 20150217
  5. PHENPROCOUMON [Concomitant]
     Active Substance: PHENPROCOUMON
     Indication: ANTICOAGULANT THERAPY
     Dosage: DOSE: BASED ON INR.
     Route: 048
     Dates: start: 20150209
  6. DRONEDARONE [Suspect]
     Active Substance: DRONEDARONE
     Indication: ATRIAL FIBRILLATION
     Route: 048
     Dates: start: 20150211, end: 20150216
  7. PANTOPRAZOLE [Concomitant]
     Active Substance: PANTOPRAZOLE SODIUM
     Indication: PROPHYLAXIS
     Route: 048
     Dates: start: 20150210, end: 20150217

REACTIONS (4)
  - Oedema [Recovering/Resolving]
  - Weight increased [Unknown]
  - Hepatic congestion [Recovering/Resolving]
  - Right ventricular failure [Recovering/Resolving]

NARRATIVE: CASE EVENT DATE: 201502
